FAERS Safety Report 5216727-8 (Version None)
Quarter: 2007Q1

REPORT INFORMATION
  Report Type: 
  Country: None (occurrence: None)
  Receive Date: 20070118
  Receipt Date: 20070104
  Transmission Date: 20070707
  Serious: Yes (Life-Threatening, Hospitalization, Other)
  Sender: FDA-Public Use
  Company Number: POMP-10860

PATIENT
  Age: 45 Year
  Sex: Female
  Weight: 56 kg

DRUGS (4)
  1. MYOZYME [Suspect]
     Indication: GLYCOGEN STORAGE DISEASE TYPE II
     Dates: start: 20060530
  2. FERROUS SULFATE TAB [Concomitant]
  3. POLARAMINE [Concomitant]
  4. TELFAST [Concomitant]

REACTIONS (13)
  - ANAPHYLACTIC REACTION [None]
  - BACK PAIN [None]
  - BLOOD PRESSURE DECREASED [None]
  - CHEST DISCOMFORT [None]
  - CHEST PAIN [None]
  - ERYTHEMA [None]
  - FLUSHING [None]
  - INFUSION RELATED REACTION [None]
  - NAUSEA [None]
  - OEDEMA [None]
  - PAIN [None]
  - RESPIRATORY DISORDER [None]
  - SKIN DISCOLOURATION [None]
